FAERS Safety Report 9028587 (Version 1)
Quarter: 2013Q1

REPORT INFORMATION
  Report Type: Spontaneous
  Country: IE (occurrence: IE)
  Receive Date: 20130124
  Receipt Date: 20130124
  Transmission Date: 20140127
  Serious: Yes (Hospitalization)
  Sender: FDA-Public Use
  Company Number: IE-GLAXOSMITHKLINE-B0860967A

PATIENT
  Age: 33 Year
  Sex: Male

DRUGS (4)
  1. TROBALT [Suspect]
     Indication: EPILEPSY
     Route: 065
     Dates: start: 20120113
  2. TOPIRAMATE [Concomitant]
     Dates: start: 200701
  3. CARBAMAZEPINE [Concomitant]
     Dates: start: 200701
  4. RUFINAMIDE [Concomitant]
     Dosage: 1200MG PER DAY

REACTIONS (4)
  - Convulsion [Unknown]
  - Pneumonia aspiration [Unknown]
  - Somnolence [Unknown]
  - Drug ineffective [Unknown]
